FAERS Safety Report 4906200-6 (Version None)
Quarter: 2006Q1

REPORT INFORMATION
  Report Type: 
  Country: None (occurrence: None)
  Receive Date: 20060207
  Receipt Date: 20060127
  Transmission Date: 20060701
  Serious: Yes (Hospitalization)
  Sender: FDA-Public Use
  Company Number: 2006RR-01554

PATIENT
  Age: 36 Year
  Sex: Male

DRUGS (1)
  1. IBUPROFEN [Suspect]
     Indication: MYALGIA
     Dosage: 200 MG, QD, ORAL
     Route: 048
     Dates: start: 20060105, end: 20060107

REACTIONS (9)
  - ABDOMINAL PAIN UPPER [None]
  - DUODENAL ULCER [None]
  - DYSPEPSIA [None]
  - HAEMATEMESIS [None]
  - MELAENA [None]
  - NAUSEA [None]
  - RECTAL HAEMORRHAGE [None]
  - SOMNOLENCE [None]
  - SYNCOPE [None]
